FAERS Safety Report 6150903-5 (Version None)
Quarter: 2009Q2

REPORT INFORMATION
  Report Type: 
  Country: None (occurrence: None)
  Receive Date: 20090408
  Receipt Date: 20090323
  Transmission Date: 20091009
  Serious: Yes (Hospitalization)
  Sender: FDA-Public Use
  Company Number: 8044276

PATIENT
  Age: 53 Year
  Sex: Female
  Weight: 102.2 kg

DRUGS (13)
  1. CIMZIA [Suspect]
     Indication: CROHN'S DISEASE
     Dosage: 400 MG ONCE SC
     Route: 058
     Dates: start: 20090301, end: 20090301
  2. HYOSCYAMINE [Concomitant]
  3. DIOVAN [Concomitant]
  4. PROTONIX /01263201/ [Concomitant]
  5. PREDNISONE TAB [Concomitant]
  6. TEMAZEPAM [Concomitant]
  7. OXYCODONE HCL [Concomitant]
  8. ALEVE [Concomitant]
  9. ENTOCORT EC [Concomitant]
  10. VITAMIN D [Concomitant]
  11. MULTI-VITAMIN [Concomitant]
  12. CITRACAL + D [Concomitant]
  13. IMODIUM [Concomitant]

REACTIONS (1)
  - ANAPHYLACTIC SHOCK [None]
